FAERS Safety Report 10209193 (Version 1)
Quarter: 2014Q2

REPORT INFORMATION
  Report Type: Spontaneous
  Country: US (occurrence: US)
  Receive Date: 20140530
  Receipt Date: 20140530
  Transmission Date: 20141212
  Serious: No
  Sender: FDA-Public Use
  Company Number: US-009507513-1405USA006279

PATIENT
  Sex: Female

DRUGS (1)
  1. PREGNYL [Suspect]
     Indication: CONTRACEPTION
     Dosage: 10000 DF, ONCE
     Route: 058

REACTIONS (3)
  - Pharyngeal oedema [Recovered/Resolved]
  - Incorrect route of drug administration [Unknown]
  - Drug administration error [Unknown]
